FAERS Safety Report 7583125-1 (Version None)
Quarter: 2011Q2

REPORT INFORMATION
  Report Type: 
  Country: None (occurrence: None)
  Receive Date: 20110630
  Receipt Date: 20100910
  Transmission Date: 20111010
  Serious: No
  Sender: FDA-Public Use
  Company Number: US-ASTRAZENECA-2010SE42650

PATIENT
  Age: 743 Month
  Sex: Male
  Weight: 95.3 kg

DRUGS (2)
  1. ZOLADEX [Suspect]
     Indication: PROSTATE CANCER
     Route: 058
     Dates: start: 20080801
  2. TERAZOSIN HCL [Concomitant]

REACTIONS (3)
  - INJECTION SITE INFLAMMATION [None]
  - WEIGHT DECREASED [None]
  - INJECTION SITE MASS [None]
